FAERS Safety Report 18980336 (Version 2)
Quarter: 2021Q4

REPORT INFORMATION
  Report Type: Report from Study
  Country: IT (occurrence: IT)
  Receive Date: 20210308
  Receipt Date: 20211115
  Transmission Date: 20220303
  Serious: Yes (Other)
  Sender: FDA-Public Use
  Company Number: None

PATIENT
  Age: 72 Year
  Sex: Male

DRUGS (6)
  1. ENZALUTAMIDE [Suspect]
     Active Substance: ENZALUTAMIDE
     Indication: Prostate cancer metastatic
     Dosage: UNK UNK, UNKNOWN FREQ.
     Route: 065
     Dates: start: 20200730, end: 20211103
  2. ENANTONE LP [Suspect]
     Active Substance: LEUPROLIDE ACETATE
     Indication: Prostate cancer metastatic
     Dosage: 3.75 MG, CYCLIC (1 CYCLICAL)
     Route: 065
     Dates: start: 20200730, end: 20211103
  3. ENANTONE LP [Suspect]
     Active Substance: LEUPROLIDE ACETATE
     Indication: Metastases to bone
  4. ZOMETA [Concomitant]
     Active Substance: ZOLEDRONIC ACID
     Indication: Metastases to bone
     Dosage: UNK UNK, UNKNOWN FREQ.
     Route: 065
  5. CANDESARTAN CILEXETIL [Concomitant]
     Active Substance: CANDESARTAN CILEXETIL
     Indication: Hypertension
     Dosage: UNK UNK, UNKNOWN FREQ.
     Route: 065
     Dates: start: 20110101, end: 20211103
  6. LASIX [Concomitant]
     Active Substance: FUROSEMIDE
     Indication: Hypertension
     Dosage: UNK UNK, UNKNOWN FREQ.
     Route: 065

REACTIONS (3)
  - Xerophthalmia [Recovering/Resolving]
  - Fluid retention [Recovering/Resolving]
  - Hot flush [Recovering/Resolving]

NARRATIVE: CASE EVENT DATE: 20200730
